FAERS Safety Report 24587176 (Version 1)
Quarter: 2024Q4

REPORT INFORMATION
  Report Type: Spontaneous
  Country: DE (occurrence: DE)
  Receive Date: 20241107
  Receipt Date: 20241107
  Transmission Date: 20250115
  Serious: Yes (Hospitalization)
  Sender: TEVA
  Company Number: None

PATIENT
  Age: 54 Year
  Sex: Female
  Weight: 88 kg

DRUGS (2)
  1. TORSEMIDE [Suspect]
     Active Substance: TORSEMIDE
     Indication: Generalised oedema
     Dosage: FIRST 10MG, AFTER 6 MONTHS 5MG
     Route: 048
     Dates: start: 20231003
  2. TORSEMIDE [Suspect]
     Active Substance: TORSEMIDE
     Indication: Generalised oedema
     Dosage: AFTER 6 MONTHS 5MG
     Route: 048
     Dates: start: 2024

REACTIONS (4)
  - Muscle spasms [Not Recovered/Not Resolved]
  - Pain in extremity [Not Recovered/Not Resolved]
  - Limb discomfort [Not Recovered/Not Resolved]
  - Muscle tightness [Not Recovered/Not Resolved]

NARRATIVE: CASE EVENT DATE: 20231004
